FAERS Safety Report 5925900-2 (Version None)
Quarter: 2008Q4

REPORT INFORMATION
  Report Type: 
  Country: None (occurrence: None)
  Receive Date: 20081021
  Receipt Date: 20081010
  Transmission Date: 20090506
  Serious: Yes (Hospitalization, Other)
  Sender: FDA-Public Use
  Company Number: US-PFIZER INC-2008085562

PATIENT
  Sex: Male
  Weight: 94.545 kg

DRUGS (3)
  1. CHANTIX [Suspect]
     Indication: SMOKING CESSATION THERAPY
     Dosage: TEXT:EVERY DAY
     Route: 048
     Dates: start: 20080901, end: 20080922
  2. WELLBUTRIN [Suspect]
     Dates: start: 20080917, end: 20080922
  3. PAXIL [Suspect]
     Dates: end: 20080917

REACTIONS (6)
  - AMNESIA [None]
  - CRYING [None]
  - EMOTIONAL DISTRESS [None]
  - FLIGHT OF IDEAS [None]
  - INAPPROPRIATE AFFECT [None]
  - SEXUAL DYSFUNCTION [None]
